FAERS Safety Report 23732979 (Version 1)
Quarter: 2024Q2

REPORT INFORMATION
  Report Type: Spontaneous
  Country: US (occurrence: None)
  Receive Date: 20240411
  Receipt Date: 20240411
  Transmission Date: 20240716
  Serious: No
  Sender: FDA-Public Use
  Company Number: None

PATIENT
  Age: 67 Year
  Sex: Female

DRUGS (1)
  1. SALONPAS PAIN RELIEF [Suspect]
     Active Substance: MENTHOL\METHYL SALICYLATE
     Indication: Neck pain
     Dates: start: 20220128, end: 20220129

REACTIONS (2)
  - Hypoglossal nerve paralysis [None]
  - Tongue disorder [None]

NARRATIVE: CASE EVENT DATE: 20220129
